FAERS Safety Report 9337825 (Version 2)
Quarter: 2013Q2

REPORT INFORMATION
  Report Type: Spontaneous
  Country: US (occurrence: US)
  Receive Date: 20130607
  Receipt Date: 20130617
  Transmission Date: 20140414
  Serious: Yes (Other)
  Sender: FDA-Public Use
  Company Number: US-AMGEN-USASP2013039722

PATIENT
  Age: 54 Year
  Sex: Female
  Weight: 59.86 kg

DRUGS (2)
  1. PROLIA [Suspect]
     Indication: OSTEOPOROSIS POSTMENOPAUSAL
     Dosage: UNK UNK, Q6MO
     Route: 058
     Dates: start: 20110527
  2. PREMARIN VAGINAL [Concomitant]
     Indication: MENOPAUSE
     Dosage: 0.625 MG/G, 3 TIMES/WK
     Route: 067
     Dates: start: 20110418

REACTIONS (1)
  - Exostosis [Not Recovered/Not Resolved]
